FAERS Safety Report 6916289-0 (Version None)
Quarter: 2010Q3

REPORT INFORMATION
  Report Type: 
  Country: None (occurrence: None)
  Receive Date: 20100810
  Receipt Date: 20100729
  Transmission Date: 20110219
  Serious: Yes (Other)
  Sender: FDA-Public Use
  Company Number: US-PFIZER INC-2010067388

PATIENT
  Sex: Female

DRUGS (3)
  1. CHANTIX [Suspect]
     Indication: SMOKING CESSATION THERAPY
     Dosage: VARIOUS DOSES
     Dates: start: 20080601, end: 20080901
  2. ZOCOR [Concomitant]
     Indication: BLOOD CHOLESTEROL
     Dosage: UNK
     Dates: start: 20000101, end: 20100101
  3. PRILOSEC [Concomitant]
     Indication: GASTRIC DISORDER
     Dosage: UNK
     Dates: start: 20000101, end: 20100101

REACTIONS (12)
  - ABNORMAL BEHAVIOUR [None]
  - AGITATION [None]
  - AMNESIA [None]
  - ANXIETY [None]
  - APATHY [None]
  - DEPRESSION [None]
  - HALLUCINATION [None]
  - INSOMNIA [None]
  - INTENTIONAL OVERDOSE [None]
  - MENTAL DISORDER [None]
  - PANIC DISORDER [None]
  - SUICIDE ATTEMPT [None]
